FAERS Safety Report 7037094-3 (Version None)
Quarter: 2010Q4

REPORT INFORMATION
  Report Type: 
  Country: None (occurrence: None)
  Receive Date: 20101011
  Receipt Date: 20101001
  Transmission Date: 20110411
  Serious: Yes (Hospitalization)
  Sender: FDA-Public Use
  Company Number: PHHO2010US15101

PATIENT
  Sex: Female
  Weight: 81 kg

DRUGS (3)
  1. AFINITOR [Suspect]
     Indication: COLORECTAL CANCER METASTATIC
     Dosage: 5MG
     Route: 048
     Dates: start: 20100902, end: 20100928
  2. AVASTIN [Suspect]
     Indication: COLORECTAL CANCER METASTATIC
     Dosage: 7.5MG/KG
     Route: 042
     Dates: start: 20100902, end: 20100921
  3. CAPECITABINE COMP-CAP+TAB [Suspect]
     Indication: COLORECTAL CANCER METASTATIC
     Dosage: 1500MG AM, 2000MG PM
     Route: 048
     Dates: start: 20090902, end: 20100928

REACTIONS (4)
  - ABDOMINAL PAIN [None]
  - AORTIC DISSECTION [None]
  - AORTIC INJURY [None]
  - BACK PAIN [None]
